FAERS Safety Report 9474978 (Version 1)
Quarter: 2013Q3

REPORT INFORMATION
  Report Type: Spontaneous
  Country: GB (occurrence: GB)
  Receive Date: 20130824
  Receipt Date: 20130824
  Transmission Date: 20140515
  Serious: Yes (Other)
  Sender: FDA-Public Use
  Company Number: GB-PFIZER INC-2013236332

PATIENT
  Age: 74 Year
  Sex: Female

DRUGS (1)
  1. DEPO-MEDRONE [Suspect]
     Dosage: 40 MG, UNK

REACTIONS (2)
  - Loss of consciousness [Unknown]
  - Cardiac arrest [Unknown]
